FAERS Safety Report 11938779 (Version 4)
Quarter: 2016Q1

REPORT INFORMATION
  Report Type: Spontaneous
  Country: JP (occurrence: JP)
  Receive Date: 20160122
  Receipt Date: 20160319
  Transmission Date: 20160526
  Serious: Yes (Hospitalization, Other)
  Sender: FDA-Public Use
  Company Number: JP-AMGEN-JPNSP2016007573

PATIENT
  Age: 5 Decade
  Sex: Female
  Weight: 41.4 kg

DRUGS (20)
  1. VECTIBIX [Suspect]
     Active Substance: PANITUMUMAB
     Indication: COLON CANCER
     Dosage: 300 MG, Q2WEEKS
     Route: 041
     Dates: start: 20150723
  2. OXALIPLATIN. [Concomitant]
     Active Substance: OXALIPLATIN
     Dosage: 120 MG, Q2WEEKS
     Route: 041
     Dates: start: 20151015
  3. 5-FU                               /00098801/ [Concomitant]
     Active Substance: FLUOROURACIL
     Dosage: 3500 MG, Q2WEEKS
     Route: 041
     Dates: start: 20151225
  4. VECTIBIX [Suspect]
     Active Substance: PANITUMUMAB
     Dosage: 300 MG, Q2WEEKS
     Route: 041
     Dates: start: 20151126, end: 20151210
  5. OXALIPLATIN. [Concomitant]
     Active Substance: OXALIPLATIN
     Indication: COLON CANCER
     Dosage: 120 MG, Q2WEEKS
     Route: 041
     Dates: start: 20150709
  6. CALCIUM LEVOFOLINATE [Concomitant]
     Active Substance: LEVOLEUCOVORIN CALCIUM
     Indication: COLON CANCER
     Dosage: 300 MG, Q2WEEKS
     Route: 041
     Dates: start: 20150709
  7. CALCIUM LEVOFOLINATE [Concomitant]
     Active Substance: LEVOLEUCOVORIN CALCIUM
     Dosage: 300 MG, Q2WEEKS
     Route: 041
     Dates: start: 20160122
  8. 5-FU                               /00098801/ [Concomitant]
     Active Substance: FLUOROURACIL
     Indication: COLON CANCER
     Dosage: 580 MG, Q2WEEKS
     Route: 040
     Dates: start: 20150709
  9. CALCIUM LEVOFOLINATE [Concomitant]
     Active Substance: LEVOLEUCOVORIN CALCIUM
     Dosage: 300 MG, Q2WEEKS
     Route: 041
     Dates: start: 20151225
  10. 5-FU                               /00098801/ [Concomitant]
     Active Substance: FLUOROURACIL
     Dosage: 3500 MG, Q2WEEKS
     Route: 041
     Dates: start: 20150709
  11. 5-FU                               /00098801/ [Concomitant]
     Active Substance: FLUOROURACIL
     Dosage: 580 MG, Q2WEEKS
     Route: 040
     Dates: start: 20151015
  12. 5-FU                               /00098801/ [Concomitant]
     Active Substance: FLUOROURACIL
     Dosage: 580 MG, Q2WEEKS
     Route: 040
     Dates: start: 20151225
  13. 5-FU                               /00098801/ [Concomitant]
     Active Substance: FLUOROURACIL
     Dosage: 580 MG, Q2WEEKS
     Route: 040
     Dates: start: 20160122
  14. ALOXI [Concomitant]
     Active Substance: PALONOSETRON HYDROCHLORIDE
     Indication: COLON CANCER
     Dosage: 0.75 MG, Q2WEEKS
     Route: 042
     Dates: start: 20150709
  15. DECADRON                           /00016002/ [Concomitant]
     Active Substance: DEXAMETHASONE
     Indication: COLON CANCER
     Dosage: 6.6 MG, Q2WEEKS
     Route: 042
     Dates: start: 20150709
  16. 5-FU                               /00098801/ [Concomitant]
     Active Substance: FLUOROURACIL
     Dosage: 3500 MG, Q2WEEKS
     Route: 041
     Dates: start: 20151015
  17. OXALIPLATIN. [Concomitant]
     Active Substance: OXALIPLATIN
     Dosage: 120 MG, Q2WEEKS
     Route: 041
     Dates: start: 20151225, end: 20151225
  18. CALCIUM LEVOFOLINATE [Concomitant]
     Active Substance: LEVOLEUCOVORIN CALCIUM
     Dosage: 300 MG, Q2WEEKS
     Route: 041
     Dates: start: 20151015
  19. VECTIBIX [Suspect]
     Active Substance: PANITUMUMAB
     Dosage: 300 MG, Q2WEEKS
     Route: 041
     Dates: start: 20151015
  20. 5-FU                               /00098801/ [Concomitant]
     Active Substance: FLUOROURACIL
     Dosage: 3500 MG, Q2WEEKS
     Route: 041
     Dates: start: 20160122

REACTIONS (7)
  - Alanine aminotransferase increased [Recovered/Resolved]
  - Pancreatitis [Recovered/Resolved]
  - Enterocolitis [Recovered/Resolved]
  - Condition aggravated [Not Recovered/Not Resolved]
  - Aspartate aminotransferase increased [Recovered/Resolved]
  - Gamma-glutamyltransferase increased [Not Recovered/Not Resolved]
  - Blood alkaline phosphatase increased [Not Recovered/Not Resolved]

NARRATIVE: CASE EVENT DATE: 20150728
